FAERS Safety Report 7009918-7 (Version None)
Quarter: 2010Q3

REPORT INFORMATION
  Report Type: 
  Country: None (occurrence: None)
  Receive Date: 20100921
  Receipt Date: 20100902
  Transmission Date: 20110219
  Serious: Yes (Death, Hospitalization, Other)
  Sender: FDA-Public Use
  Company Number: 2010003213

PATIENT
  Age: 46 Year
  Sex: Female

DRUGS (2)
  1. ERLOTINIB HYDROCHLORIDE [Suspect]
     Indication: BREAST CANCER
     Dosage: (150 MG, QD), ORAL
     Route: 048
     Dates: start: 20100101, end: 20100413
  2. BENDAMUSTINE (BENDAMUSTINE) [Suspect]
     Indication: BREAST CANCER
     Dosage: 234 MG, INTRAVENOUS
     Route: 042
     Dates: start: 20091228, end: 20100325

REACTIONS (17)
  - ALANINE AMINOTRANSFERASE INCREASED [None]
  - CANDIDIASIS [None]
  - CHEST PAIN [None]
  - CONFUSIONAL STATE [None]
  - DYSPNOEA [None]
  - FATIGUE [None]
  - HYPERKALAEMIA [None]
  - INAPPROPRIATE ANTIDIURETIC HORMONE SECRETION [None]
  - KLEBSIELLA INFECTION [None]
  - LYMPHOPENIA [None]
  - NAUSEA [None]
  - PANCYTOPENIA [None]
  - PLATELET COUNT DECREASED [None]
  - PNEUMONIA [None]
  - SPUTUM CULTURE POSITIVE [None]
  - STAPHYLOCOCCAL INFECTION [None]
  - TRANSAMINASES INCREASED [None]
